FAERS Safety Report 16649016 (Version 1)
Quarter: 2019Q3

REPORT INFORMATION
  Report Type: Spontaneous
  Country: NL (occurrence: NL)
  Receive Date: 20190730
  Receipt Date: 20190730
  Transmission Date: 20191004
  Serious: Yes (Hospitalization)
  Sender: FDA-Public Use
  Company Number: NL-TEVA-2019-NL-1085449

PATIENT
  Sex: Male

DRUGS (3)
  1. COLCHICINE TABLET, 0,5 MG (MILLIGRAM) [Suspect]
     Active Substance: COLCHICINE
     Indication: GOUT
     Dosage: 3D1T
     Dates: start: 20190611
  2. PREDNISOLON CAPSULE, 30 MG (MILLIGRAM) [Suspect]
     Active Substance: PREDNISOLONE
     Indication: GOUT
     Dates: start: 20190319, end: 20190506
  3. NAPROXEN TABLET, 250 MG (MILLIGRAM) [Suspect]
     Active Substance: NAPROXEN
     Indication: GOUT
     Dates: start: 20190528, end: 20190604

REACTIONS (2)
  - Cardiac failure [Recovering/Resolving]
  - Atrial fibrillation [Recovering/Resolving]
